FAERS Safety Report 5143610-9 (Version None)
Quarter: 2006Q4

REPORT INFORMATION
  Report Type: 
  Country: None (occurrence: None)
  Receive Date: 20061030
  Receipt Date: 20060828
  Transmission Date: 20070319
  Serious: Yes (Other)
  Sender: FDA-Public Use
  Company Number: 2006107108

PATIENT
  Age: 35 Year
  Sex: Male
  Weight: 68.0396 kg

DRUGS (4)
  1. CHANTIX [Suspect]
     Indication: SMOKING CESSATION THERAPY
     Dosage: ORAL
     Route: 048
     Dates: start: 20060726
  2. LIPITOR [Suspect]
     Indication: BLOOD CHOLESTEROL
  3. ALL OTHER THERAPEUTIC PRODUCTS (ALL OTHER THERAPEUTIC PRODUCTS) [Suspect]
     Indication: ANTACID THERAPY
  4. MULTI-VITAMINS [Suspect]
     Indication: ANTACID THERAPY

REACTIONS (8)
  - ABNORMAL DREAMS [None]
  - ACNE [None]
  - CONDITION AGGRAVATED [None]
  - CONFUSIONAL STATE [None]
  - DIZZINESS [None]
  - MEMORY IMPAIRMENT [None]
  - PURULENT DISCHARGE [None]
  - TREATMENT NONCOMPLIANCE [None]
